FAERS Safety Report 23391835 (Version 1)
Quarter: 2024Q1

REPORT INFORMATION
  Report Type: Report from Study
  Country: CA (occurrence: None)
  Receive Date: 20240111
  Receipt Date: 20240111
  Transmission Date: 20240409
  Serious: Yes (Hospitalization)
  Sender: FDA-Public Use
  Company Number: 2024A004785

PATIENT
  Sex: Male

DRUGS (6)
  1. FASENRA [Suspect]
     Active Substance: BENRALIZUMAB
     Indication: Asthma
     Dosage: 30.0MG UNKNOWN
     Route: 058
     Dates: start: 20201105
  2. FASENRA [Suspect]
     Active Substance: BENRALIZUMAB
     Indication: Asthma
     Dosage: 30.0MG UNKNOWN
     Route: 058
     Dates: start: 20240102
  3. ALVESCO [Concomitant]
     Active Substance: CICLESONIDE
     Dosage: ALVESCO 200UG 4 INH BID
  4. SPIRIVA [Concomitant]
     Active Substance: TIOTROPIUM BROMIDE MONOHYDRATE
     Dosage: SPIRIVA 18UG DIE 2 INH
  5. PREDNISONE [Concomitant]
     Active Substance: PREDNISONE
     Dosage: PREDNISONE 50MG X 5 DAYS PLUS 25MG X 5 DAYS
  6. XOLAIR [Concomitant]
     Active Substance: OMALIZUMAB
     Dosage: UNK-UNK-UNK

REACTIONS (1)
  - Influenza [Unknown]
